FAERS Safety Report 4679537-6 (Version None)
Quarter: 2005Q2

REPORT INFORMATION
  Report Type: 
  Country: None (occurrence: None)
  Receive Date: 20050602
  Receipt Date: 20050520
  Transmission Date: 20051028
  Serious: Yes (Hospitalization)
  Sender: FDA-Public Use
  Company Number: CH-SOLVAY-00205001844

PATIENT
  Age: 68 Year
  Sex: Male

DRUGS (7)
  1. ZYLORIC [Concomitant]
     Indication: ILL-DEFINED DISORDER
     Dosage: DAILY DOSE:  UNKNOWN
     Route: 065
  2. COVERSUM [Suspect]
     Indication: ILL-DEFINED DISORDER
     Dosage: DAILY DOSE:  UNKNOWN
     Route: 048
  3. COVERSUM [Suspect]
     Dosage: DAILY DOSE: 8 MILLIGRAM(S)
     Route: 048
     Dates: end: 20050414
  4. TORSEMIDE [Suspect]
     Indication: ILL-DEFINED DISORDER
     Dosage: DAILY DOSE: 10 MILLIGRAM(S)
     Route: 065
     Dates: end: 20050414
  5. TORSEMIDE [Suspect]
     Dosage: DAILY DOSE:  UNKNOWN
     Route: 065
     Dates: start: 20050415
  6. ALDACTONE [Suspect]
     Indication: ILL-DEFINED DISORDER
     Dosage: DAILY DOSE: 25 MILLIGRAM(S)
     Route: 048
     Dates: end: 20050414
  7. CIPROXIN [Suspect]
     Indication: URINARY TRACT INFECTION
     Dosage: DAILY DOSE:  UNKNOWN
     Route: 048
     Dates: start: 20050409, end: 20050414

REACTIONS (4)
  - ACUTE PRERENAL FAILURE [None]
  - DEHYDRATION [None]
  - RENAL CYST [None]
  - URINARY TRACT INFECTION [None]
